FAERS Safety Report 6007117-9 (Version None)
Quarter: 2008Q4

REPORT INFORMATION
  Report Type: 
  Country: None (occurrence: None)
  Receive Date: 20081217
  Receipt Date: 20080118
  Transmission Date: 20090506
  Serious: No
  Sender: FDA-Public Use
  Company Number: US-ASTRAZENECA-2008UW01387

PATIENT
  Age: 66 Year
  Sex: Female
  Weight: 2.3 kg

DRUGS (5)
  1. CRESTOR [Suspect]
     Indication: BLOOD CHOLESTEROL INCREASED
     Route: 048
     Dates: start: 20080106
  2. SYNTHROID [Concomitant]
  3. VIVELLE-DOT [Concomitant]
  4. OMEGA 3 FATTY ACIDS [Concomitant]
  5. COENZYME Q10 [Concomitant]

REACTIONS (6)
  - DIZZINESS [None]
  - ERYTHEMA [None]
  - JOINT STIFFNESS [None]
  - LIP SWELLING [None]
  - PALLOR [None]
  - PALPITATIONS [None]
